FAERS Safety Report 6599440-4 (Version None)
Quarter: 2010Q1

REPORT INFORMATION
  Report Type: 
  Country: None (occurrence: None)
  Receive Date: 20100217
  Receipt Date: 20100203
  Transmission Date: 20100710
  Serious: Yes (Death, Other)
  Sender: FDA-Public Use
  Company Number: 2009S1005545

PATIENT
  Age: 55 Year
  Sex: Female

DRUGS (2)
  1. PHOSPHOSODA FLAVOR NOT SPECIFIED [Suspect]
     Indication: COLONOSCOPY
     Dosage: 90 ML; TOTAL;
     Dates: start: 20041101, end: 20041101
  2. LEVAQUIN [Concomitant]

REACTIONS (1)
  - RENAL DISORDER [None]
